FAERS Safety Report 8537924-X (Version None)
Quarter: 2012Q3

REPORT INFORMATION
  Report Type: 
  Country: None (occurrence: None)
  Receive Date: 20120725
  Receipt Date: 20120705
  Transmission Date: 20120928
  Serious: Yes (Other)
  Sender: FDA-Public Use
  Company Number: JP-GLAXOSMITHKLINE-B0813922A

PATIENT
  Sex: Female

DRUGS (2)
  1. PAXIL [Suspect]
     Dosage: 20MG PER DAY
     Route: 048
     Dates: start: 20120704
  2. PAXIL [Suspect]
     Indication: DEPRESSION
     Dosage: 10MG PER DAY
     Route: 048
     Dates: start: 20120627, end: 20120703

REACTIONS (7)
  - HALLUCINATION, AUDITORY [None]
  - INSOMNIA [None]
  - SALIVARY HYPERSECRETION [None]
  - SCREAMING [None]
  - DYSGEUSIA [None]
  - PSYCHIATRIC SYMPTOM [None]
  - EATING DISORDER [None]
